FAERS Safety Report 6660645-5 (Version None)
Quarter: 2010Q1

REPORT INFORMATION
  Report Type: 
  Country: None (occurrence: None)
  Receive Date: 20100329
  Receipt Date: 20100315
  Transmission Date: 20100710
  Serious: Yes (Hospitalization, Other)
  Sender: FDA-Public Use
  Company Number: OMPQ-NO-1002S-0066

PATIENT
  Age: 6 Week
  Sex: Female
  Weight: 2.1 kg

DRUGS (9)
  1. OMNIPAQUE 350 [Suspect]
     Indication: DRUG EXPOSURE VIA BREAST MILK
     Dosage: , SINGLE DOSE, P.O.
     Route: 048
     Dates: start: 20091105, end: 20091105
  2. OMNIPAQUE 350 [Suspect]
     Indication: DRUG EXPOSURE VIA BREAST MILK
     Dosage: , SINGLE DOSE, P.O.
     Route: 048
     Dates: start: 20091117, end: 20091117
  3. OMNIPAQUE 350 [Suspect]
     Indication: DRUG EXPOSURE VIA BREAST MILK
     Dosage: , SINGLE DOSE, P.O.
     Route: 048
     Dates: start: 20100121, end: 20100121
  4. PYRIDOXINE HYDROCHLORIDE, THIAMINE HYDROCHLORIDE, LYSINE HYDROCHLORIDE [Concomitant]
  5. THEOPHYLLINE (APNECUT) [Concomitant]
  6. ALFACALIDOL (ALFAROL) [Concomitant]
  7. EPOETIN ALFA (ESPO) [Concomitant]
  8. WARFARIN [Concomitant]
  9. TAKEPRON [Concomitant]

REACTIONS (2)
  - DRUG EXPOSURE VIA BREAST MILK [None]
  - HYPOTHYROIDISM [None]
